FAERS Safety Report 4302348-8 (Version None)
Quarter: 2004Q1

REPORT INFORMATION
  Report Type: 
  Country: None (occurrence: None)
  Receive Date: 20040220
  Receipt Date: 20040211
  Transmission Date: 20041129
  Serious: Yes (Death, Hospitalization, Other)
  Sender: FDA-Public Use
  Company Number: USA-2002-0002836

PATIENT
  Age: 45 Year
  Sex: Male
  Weight: 69.8 kg

DRUGS (12)
  1. OXYCONTIN [Suspect]
     Indication: PAIN
     Dosage: SEE IMAGE
     Route: 048
     Dates: start: 20010101
  2. LORCET (PARACETASMOL, HYDROCODONE BITARTRATE) [Suspect]
     Dosage: 10 MG
  3. REMERON [Concomitant]
  4. RELAFEN [Concomitant]
  5. NEURONTIN [Concomitant]
  6. ULTRAM [Concomitant]
  7. SOMA [Concomitant]
  8. EFFEXOR [Concomitant]
  9. BIAXIN [Concomitant]
  10. XANAX [Concomitant]
  11. ZANAFLEX [Concomitant]
  12. TRANXENE [Concomitant]

REACTIONS (14)
  - ANXIETY [None]
  - COMPLETED SUICIDE [None]
  - DEPRESSION [None]
  - DRUG ABUSER [None]
  - DRUG DEPENDENCE [None]
  - DRUG INEFFECTIVE [None]
  - GUN SHOT WOUND [None]
  - HYPOAESTHESIA [None]
  - LOSS OF CONSCIOUSNESS [None]
  - MUSCLE SPASMS [None]
  - PAIN [None]
  - PARAESTHESIA [None]
  - TEMPERATURE INTOLERANCE [None]
  - WEIGHT DECREASED [None]
